FAERS Safety Report 11030803 (Version 1)
Quarter: 2015Q2

REPORT INFORMATION
  Report Type: Spontaneous
  Country: US (occurrence: None)
  Receive Date: 20150414
  Receipt Date: 20150414
  Transmission Date: 20150821
  Serious: Yes (Other)
  Sender: FDA-Public Use
  Company Number: None

PATIENT
  Age: 33 Year
  Sex: Female
  Weight: 109.32 kg

DRUGS (1)
  1. HYDROXYCHLOROQUINE [Suspect]
     Active Substance: HYDROXYCHLOROQUINE
     Indication: SYSTEMIC LUPUS ERYTHEMATOSUS
     Dosage: 200MG, BID, PO
     Route: 048
     Dates: start: 2009, end: 2014

REACTIONS (2)
  - Gastrointestinal disorder [None]
  - Drug intolerance [None]

NARRATIVE: CASE EVENT DATE: 20120105
